FAERS Safety Report 9933154 (Version 1)
Quarter: 2014Q1

REPORT INFORMATION
  Report Type: Spontaneous
  Country: US (occurrence: None)
  Receive Date: 20140226
  Receipt Date: 20140226
  Transmission Date: 20141002
  Serious: Yes (Hospitalization)
  Sender: FDA-Public Use
  Company Number: 14-00234

PATIENT
  Age: 52 Year
  Sex: Female
  Weight: 71.67 kg

DRUGS (4)
  1. ALBUTEROL SULFATE INHALATION SOLUTION, 0.083% [Suspect]
     Indication: CHRONIC OBSTRUCTIVE PULMONARY DISEASE
     Dosage: 1 VIAL QID 054
     Dates: start: 201310
  2. ALBUTEROL SULFATE INHALATION SOLUTION, 0.083% [Suspect]
     Indication: ASTHMA
     Dosage: 1 VIAL QID 054
     Dates: start: 201310
  3. ALBUTEROL SULFATE INHALATION SOLUTION, 0.083% [Suspect]
     Indication: EMPHYSEMA
     Dosage: 1 VIAL QID 054
     Dates: start: 201310
  4. NEPHRON PHARMACEUTICALS CORPORATION [Suspect]
     Indication: BRONCHITIS

REACTIONS (2)
  - Asthma [None]
  - Chronic obstructive pulmonary disease [None]
